FAERS Safety Report 8543056-7 (Version None)
Quarter: 2012Q3

REPORT INFORMATION
  Report Type: 
  Country: None (occurrence: None)
  Receive Date: 20120727
  Receipt Date: 20120723
  Transmission Date: 20120928
  Serious: Yes (Other)
  Sender: FDA-Public Use
  Company Number: US-PFIZER INC-2012178150

PATIENT
  Sex: Female
  Weight: 69.388 kg

DRUGS (3)
  1. LYRICA [Suspect]
     Indication: PAIN IN EXTREMITY
  2. LEVOXYL [Concomitant]
     Indication: HYPOTHYROIDISM
     Dosage: 100 UG, DAILY
  3. LYRICA [Suspect]
     Indication: BACK PAIN
     Dosage: 100 MG, 2X/DAY
     Route: 048

REACTIONS (6)
  - ABDOMINAL PAIN UPPER [None]
  - MALAISE [None]
  - ACTIVITIES OF DAILY LIVING IMPAIRED [None]
  - ABDOMINAL DISCOMFORT [None]
  - HYPERTENSION [None]
  - NAUSEA [None]
